FAERS Safety Report 7271879-3 (Version None)
Quarter: 2011Q1

REPORT INFORMATION
  Report Type: 
  Country: None (occurrence: None)
  Receive Date: 20110131
  Receipt Date: 20110131
  Transmission Date: 20110831
  Serious: Yes (Congenital Anomaly)
  Sender: FDA-Public Use
  Company Number: None

PATIENT
  Sex: Female
  Weight: 104.3273 kg

DRUGS (2)
  1. DILTIAZEM [Suspect]
     Indication: HYPERTENSION
     Dosage: 300 MG 1 PO QD PO
     Route: 048
  2. DILTIAZEM [Suspect]
     Indication: ANGINA PECTORIS
     Dosage: 300 MG 1 PO QD PO
     Route: 048

REACTIONS (3)
  - URTICARIA [None]
  - NAUSEA [None]
  - HEADACHE [None]
